FAERS Safety Report 9173902 (Version 1)
Quarter: 2013Q1

REPORT INFORMATION
  Report Type: Spontaneous
  Country: US (occurrence: None)
  Receive Date: 20130318
  Receipt Date: 20130318
  Transmission Date: 20140127
  Serious: Yes (Other)
  Sender: FDA-Public Use
  Company Number: 001494191A

PATIENT
  Age: 54 Year
  Sex: Female

DRUGS (1)
  1. MEANINGFUL BEAUTY CINDY CRAWFORD ANTIOXIDANT SPF 20 UVA/UVB [Suspect]

REACTIONS (9)
  - Eye irritation [None]
  - Eye swelling [None]
  - Eye pruritus [None]
  - Visual impairment [None]
  - Rash [None]
  - Pruritus [None]
  - Rash [None]
  - Retinal disorder [None]
  - Dry eye [None]
